FAERS Safety Report 8443231-6 (Version None)
Quarter: 2012Q2

REPORT INFORMATION
  Report Type: 
  Country: None (occurrence: None)
  Receive Date: 20120617
  Receipt Date: 20120606
  Transmission Date: 20120825
  Serious: Yes (Hospitalization)
  Sender: FDA-Public Use
  Company Number: US-VERTEX PHARMACEUTICALS INC.-AE-2012-008589

PATIENT
  Sex: Female
  Weight: 83 kg

DRUGS (15)
  1. NEOCON [Concomitant]
     Route: 048
  2. ASPIRIN [Concomitant]
     Route: 048
  3. INCIVEK [Suspect]
     Indication: HEPATITIS C
     Route: 048
     Dates: start: 20120301
  4. NORVASC [Concomitant]
     Route: 048
  5. RA FISH OIL [Concomitant]
     Route: 048
  6. LOSARTAN POTASSIUM [Concomitant]
     Route: 048
  7. MYCOPHENOLATE MOFETIL [Concomitant]
     Route: 048
  8. ATENOLOL [Concomitant]
     Route: 048
  9. NORCO [Concomitant]
     Route: 048
  10. PV VITAMIN E [Concomitant]
     Route: 048
  11. ALLOPURINOL [Concomitant]
     Route: 048
  12. RIBASPHERE [Concomitant]
     Indication: HEPATITIS C
     Route: 048
     Dates: start: 20120301
  13. CYCLOSPORINE [Concomitant]
     Route: 048
  14. PEGASYS [Concomitant]
     Indication: HEPATITIS C
     Route: 058
     Dates: start: 20120301
  15. METFORMIN HCL [Concomitant]
     Route: 048

REACTIONS (3)
  - ANAEMIA [None]
  - ASTHENIA [None]
  - RECTAL HAEMORRHAGE [None]
